FAERS Safety Report 5303809-5 (Version None)
Quarter: 2007Q1

REPORT INFORMATION
  Report Type: 
  Country: None (occurrence: None)
  Receive Date: 20070201
  Receipt Date: 20061118
  Transmission Date: 20070707
  Serious: No
  Sender: FDA-Public Use
  Company Number: 2006PV025504

PATIENT
  Age: 41 Year
  Sex: Female
  Weight: 141.5223 kg

DRUGS (2)
  1. BYETTA [Suspect]
     Indication: GLUCOSE TOLERANCE IMPAIRED
     Dosage: 5 MCG;BID;SC
     Route: 058
     Dates: start: 20061104
  2. GLYBURIDE / METFORMIN 5/500 MG [Concomitant]

REACTIONS (3)
  - INJECTION SITE PAIN [None]
  - MEDICATION ERROR [None]
  - WEIGHT DECREASED [None]
